FAERS Safety Report 4749755-7 (Version None)
Quarter: 2005Q3

REPORT INFORMATION
  Report Type: 
  Country: None (occurrence: None)
  Receive Date: 20050819
  Receipt Date: 20050819
  Transmission Date: 20060218
  Serious: Yes (Other)
  Sender: FDA-Public Use
  Company Number: None

PATIENT
  Age: 32 Year
  Sex: Female
  Weight: 58 kg

DRUGS (2)
  1. RITUXIMAB [Suspect]
     Indication: NEOPLASM MALIGNANT
     Dosage: 605MG X1 IV
     Route: 042
     Dates: start: 20050808, end: 20050808
  2. RITUXIMAB [Suspect]

REACTIONS (3)
  - INFUSION RELATED REACTION [None]
  - THROAT IRRITATION [None]
  - THROAT TIGHTNESS [None]
